FAERS Safety Report 9169554 (Version 6)
Quarter: 2013Q4

REPORT INFORMATION
  Report Type: Spontaneous
  Country: US (occurrence: US)
  Receive Date: 20130318
  Receipt Date: 20131106
  Transmission Date: 20140711
  Serious: Yes (Hospitalization, Other)
  Sender: FDA-Public Use
  Company Number: US-MERCK-1303USA008143

PATIENT
  Sex: Female
  Weight: 46.71 kg

DRUGS (11)
  1. FOSAMAX [Suspect]
     Indication: OSTEOPENIA
     Dosage: 10 MG, QD
     Route: 048
     Dates: start: 20000928, end: 20010111
  2. FOSAMAX [Suspect]
     Indication: OSTEOPOROSIS
     Dosage: 70 MG, QW
     Route: 048
     Dates: start: 20010112
  3. FOSAMAX PLUS D [Suspect]
     Indication: OSTEOPENIA
     Dosage: 70 MG, QW
     Route: 048
     Dates: start: 20070126, end: 20071108
  4. FOSAMAX PLUS D [Suspect]
     Indication: OSTEOPOROSIS
  5. ALENDRONATE SODIUM [Suspect]
     Indication: OSTEOPENIA
     Dosage: UNK
     Dates: start: 20080505, end: 20080911
  6. ALENDRONATE SODIUM [Suspect]
     Indication: OSTEOPOROSIS
  7. FLONASE [Concomitant]
     Indication: HYPERSENSITIVITY
     Dosage: UNK
     Dates: start: 20040326, end: 200404
  8. PROMETHAZINE [Concomitant]
     Indication: HYPERSENSITIVITY
     Dosage: UNK
     Dates: start: 20040402, end: 20040717
  9. FLULAVAL [Concomitant]
     Dosage: UNK
     Dates: start: 20071026, end: 20071026
  10. FLULAVAL [Concomitant]
     Dosage: UNK
     Dates: start: 20090924, end: 20090924
  11. FLUVIRIN [Concomitant]
     Dosage: UNK
     Dates: start: 20081017, end: 20081017

REACTIONS (60)
  - Femur fracture [Recovered/Resolved]
  - Intramedullary rod insertion [Unknown]
  - Intramedullary rod insertion [Unknown]
  - Shoulder arthroplasty [Unknown]
  - Haemorrhagic anaemia [Recovering/Resolving]
  - Tibia fracture [Unknown]
  - Femur fracture [Unknown]
  - Low turnover osteopathy [Unknown]
  - Hypertension [Unknown]
  - Pain [Unknown]
  - Osteoarthritis [Unknown]
  - Urinary tract infection [Unknown]
  - Sleep disorder [Unknown]
  - Skin disorder [Unknown]
  - Infection [Unknown]
  - Skin infection [Unknown]
  - Cough [Unknown]
  - Adverse event [Unknown]
  - Eye disorder [Unknown]
  - Bacterial infection [Unknown]
  - Peptic ulcer [Unknown]
  - Aortic arteriosclerosis [Unknown]
  - Rotator cuff syndrome [Unknown]
  - Osteoarthritis [Unknown]
  - Deep vein thrombosis [Unknown]
  - Peripheral vascular disorder [Unknown]
  - Fluid retention [Unknown]
  - Radius fracture [Recovering/Resolving]
  - Ulna fracture [Unknown]
  - Radius fracture [Unknown]
  - Closed fracture manipulation [Unknown]
  - Medical device removal [Unknown]
  - Medical device pain [Unknown]
  - Rotator cuff syndrome [Unknown]
  - Arthritis [Unknown]
  - Laceration [Unknown]
  - Contusion [Unknown]
  - Carpal tunnel syndrome [Unknown]
  - Bursitis infective [Recovering/Resolving]
  - Osteoarthritis [Unknown]
  - Urinary tract infection [Unknown]
  - Fibula fracture [Unknown]
  - Wrist deformity [Unknown]
  - Rotator cuff syndrome [Unknown]
  - Drug intolerance [Unknown]
  - Hyperaesthesia [Unknown]
  - Discomfort [Unknown]
  - Oophorectomy [Unknown]
  - Body height decreased [Unknown]
  - Underweight [Unknown]
  - Pollakiuria [Unknown]
  - Nodal osteoarthritis [Unknown]
  - Osteoarthritis [Unknown]
  - Scoliosis [Unknown]
  - Drug ineffective [Unknown]
  - Drug ineffective [Unknown]
  - Muscle spasms [Unknown]
  - Muscle spasms [Unknown]
  - Headache [Unknown]
  - Gastrooesophageal reflux disease [Unknown]
